FAERS Safety Report 15165555 (Version 1)
Quarter: 2018Q4

REPORT INFORMATION
  Report Type: Spontaneous
  Country: US (occurrence: US)
  Receive Date: 20180719
  Receipt Date: 20180719
  Transmission Date: 20190204
  Serious: Yes (Other)
  Sender: FDA-Public Use
  Company Number: US-PRINSTON PHARMACEUTICAL INC.-2017PRN00386

PATIENT
  Sex: Female
  Weight: 58.5 kg

DRUGS (5)
  1. VITAMIN D [Concomitant]
     Active Substance: CHOLECALCIFEROL
     Dosage: UNK, IN THE WINTER
  2. FISH OIL [Concomitant]
     Active Substance: FISH OIL
  3. CLONAZEPAM (UNSPECIFIED MANUFACTURER) [Suspect]
     Active Substance: CLONAZEPAM
  4. CLONAZEPAM. [Suspect]
     Active Substance: CLONAZEPAM
     Indication: INSOMNIA
     Dosage: 14 MG, 1X/DAY
     Route: 048
     Dates: start: 1996, end: 2014
  5. MULTIVITAMINS [Concomitant]
     Active Substance: VITAMINS

REACTIONS (13)
  - Emotional distress [Recovered/Resolved]
  - Rebound effect [Recovered/Resolved]
  - Skin burning sensation [Recovered/Resolved]
  - Sensory disturbance [Recovered/Resolved]
  - Off label use [Not Recovered/Not Resolved]
  - Insomnia [Unknown]
  - Pain in extremity [Recovered/Resolved]
  - Fear [Recovered/Resolved]
  - Withdrawal syndrome [Recovered/Resolved]
  - Pain [Recovered/Resolved]
  - Hallucination [Recovered/Resolved]
  - Neuralgia [Recovered/Resolved]
  - Negative thoughts [Recovered/Resolved]

NARRATIVE: CASE EVENT DATE: 1996
